FAERS Safety Report 9159484 (Version 1)
Quarter: 2013Q1

REPORT INFORMATION
  Report Type: Spontaneous
  Country: GB (occurrence: None)
  Receive Date: 20130215
  Receipt Date: 20130215
  Transmission Date: 20140127
  Serious: Yes (Hospitalization)
  Sender: FDA-Public Use
  Company Number: GER/UKI/13/0027947

PATIENT
  Age: 87 Year
  Sex: Male
  Weight: 69.6 kg

DRUGS (6)
  1. DONEPEZIL (DONEPEZIL) [Suspect]
     Indication: DEMENTIA
     Route: 048
     Dates: end: 20130130
  2. CIMETIDINE (CIMETIDINE) [Concomitant]
  3. FYOBEL MEBEVIRINE (COLVEN) [Concomitant]
  4. SIMVASTATIN (SIMVASTATIN) [Concomitant]
  5. THIAMINE HYDROCHLORIDE (THIAMINE HYDROCHLORIDE) [Concomitant]
  6. VITAMIN B COMPLEX STRONG (VITAMIN B COMPLEX) [Concomitant]

REACTIONS (6)
  - Bradycardia [None]
  - Cold sweat [None]
  - Loss of consciousness [None]
  - Hyperhidrosis [None]
  - Syncope [None]
  - Vomiting [None]
